FAERS Safety Report 5787414-2 (Version None)
Quarter: 2008Q2

REPORT INFORMATION
  Report Type: 
  Country: None (occurrence: None)
  Receive Date: 20080625
  Receipt Date: 20080617
  Transmission Date: 20081010
  Serious: Yes (Hospitalization)
  Sender: FDA-Public Use
  Company Number: AT-ASTRAZENECA-2008PK01222

PATIENT
  Age: 61 Year
  Sex: Female
  Weight: 57 kg

DRUGS (1)
  1. SELOKEN RETARD [Suspect]
     Route: 048
     Dates: start: 20020301, end: 20080501

REACTIONS (3)
  - HYPERTENSION [None]
  - PANIC ATTACK [None]
  - VISUAL DISTURBANCE [None]
